FAERS Safety Report 5642983-8 (Version None)
Quarter: 2008Q1

REPORT INFORMATION
  Report Type: 
  Country: None (occurrence: None)
  Receive Date: 20080228
  Receipt Date: 20080222
  Transmission Date: 20080703
  Serious: Yes (Hospitalization)
  Sender: FDA-Public Use
  Company Number: B0500606A

PATIENT
  Age: 72 Year
  Sex: Male

DRUGS (6)
  1. VALTREX [Suspect]
     Indication: HERPES ZOSTER
     Dosage: 500MG THREE TIMES PER DAY
     Route: 048
     Dates: start: 20071212, end: 20071216
  2. AMINOLEBAN [Concomitant]
     Indication: HEPATITIS C
     Dosage: 50G PER DAY
     Route: 048
  3. INSULIN [Concomitant]
     Indication: DIABETES MELLITUS
     Route: 058
  4. LACTULOSE [Concomitant]
     Indication: HEPATITIS C
     Dosage: 6G PER DAY
     Route: 048
  5. MAGMITT [Concomitant]
     Route: 048
  6. URSO 250 [Concomitant]
     Indication: HEPATITIS C
     Dosage: 300MG PER DAY
     Route: 048

REACTIONS (12)
  - AGITATION [None]
  - ALTERED STATE OF CONSCIOUSNESS [None]
  - DEPRESSED LEVEL OF CONSCIOUSNESS [None]
  - DROOLING [None]
  - DYSARTHRIA [None]
  - HALLUCINATION [None]
  - MUSCULAR WEAKNESS [None]
  - MYOCLONUS [None]
  - NERVOUS SYSTEM DISORDER [None]
  - SALIVARY HYPERSECRETION [None]
  - SOMNOLENCE [None]
  - VOMITING [None]
